FAERS Safety Report 5493409-9 (Version None)
Quarter: 2007Q4

REPORT INFORMATION
  Report Type: 
  Country: None (occurrence: None)
  Receive Date: 20071023
  Receipt Date: 20071010
  Transmission Date: 20080405
  Serious: Yes (Hospitalization)
  Sender: FDA-Public Use
  Company Number: US-ELI_LILLY_AND_COMPANY-US200710002684

PATIENT
  Sex: Female

DRUGS (1)
  1. CYMBALTA [Suspect]
     Dates: start: 20070701

REACTIONS (2)
  - DYSPHAGIA [None]
  - HOSPITALISATION [None]
